FAERS Safety Report 11740626 (Version 2)
Quarter: 2015Q4

REPORT INFORMATION
  Report Type: Spontaneous
  Country: US (occurrence: US)
  Receive Date: 20151110
  Receipt Date: 20151120
  Transmission Date: 20160304
  Serious: No
  Sender: FDA-Public Use
  Company Number: US-ELI_LILLY_AND_COMPANY-US201205010691

PATIENT
  Sex: Female

DRUGS (4)
  1. FORTEO [Suspect]
     Active Substance: TERIPARATIDE
     Dosage: 20 UG, QD
  2. FORTEO [Suspect]
     Active Substance: TERIPARATIDE
     Indication: OSTEOPOROSIS
     Dosage: 20 UG, QD
     Dates: start: 20111225
  3. CALCIUM [Concomitant]
     Active Substance: CALCIUM
  4. VITAMIN D [Concomitant]
     Active Substance: CHOLECALCIFEROL

REACTIONS (22)
  - Spinal fracture [Unknown]
  - Contusion [Unknown]
  - Cough [Unknown]
  - Hypoaesthesia [Unknown]
  - Neuralgia [Unknown]
  - Skeletal injury [Unknown]
  - Dysstasia [Unknown]
  - Paraesthesia [Unknown]
  - Myalgia [Unknown]
  - Pain in extremity [Unknown]
  - Balance disorder [Not Recovered/Not Resolved]
  - Burning sensation [Unknown]
  - Gait disturbance [Unknown]
  - Ligament sprain [Unknown]
  - Muscle tightness [Unknown]
  - Pain [Unknown]
  - Muscular weakness [Unknown]
  - Fall [Unknown]
  - Bone disorder [Unknown]
  - Hyperaesthesia [Unknown]
  - Fall [Recovered/Resolved]
  - Hypersensitivity [Unknown]
